FAERS Safety Report 6095105-6 (Version None)
Quarter: 2009Q1

REPORT INFORMATION
  Report Type: 
  Country: None (occurrence: None)
  Receive Date: 20090227
  Receipt Date: 20080121
  Transmission Date: 20090719
  Serious: No
  Sender: FDA-Public Use
  Company Number: A0704351A

PATIENT
  Sex: Female

DRUGS (5)
  1. LAMICTAL [Suspect]
     Indication: DRUG USE FOR UNKNOWN INDICATION
     Dosage: 4MG UNKNOWN
     Route: 048
  2. DEPAKOTE [Concomitant]
  3. COLAZAL [Concomitant]
  4. RANITIDINE [Concomitant]
  5. PROPRANOLOL [Concomitant]

REACTIONS (1)
  - HEADACHE [None]
